FAERS Safety Report 11788244 (Version 3)
Quarter: 2016Q1

REPORT INFORMATION
  Report Type: Report from Study
  Country: IT (occurrence: IT)
  Receive Date: 20151201
  Receipt Date: 20160203
  Transmission Date: 20160525
  Serious: Yes (Hospitalization)
  Sender: FDA-Public Use
  Company Number: IT-ROCHE-1662106

PATIENT
  Age: 73 Year
  Sex: Female
  Weight: 49.5 kg

DRUGS (8)
  1. BEVACIZUMAB [Suspect]
     Active Substance: BEVACIZUMAB
     Indication: GLIOBLASTOMA
     Dosage: DATE OF MOST RECENT ADMINISTERED PRIOR TO THE ONSET OF SAE WAS ON 27/OCT/2015
     Route: 042
     Dates: start: 20140728, end: 20151127
  2. OLMESARTAN [Concomitant]
     Active Substance: OLMESARTAN
     Indication: HYPERTENSION
     Route: 048
     Dates: start: 20151009
  3. AMLODIPINE [Concomitant]
     Active Substance: AMLODIPINE BESYLATE
     Indication: HYPERTENSION
     Route: 048
  4. DEURSIL [Concomitant]
     Active Substance: URSODIOL
     Indication: TRANSAMINASES INCREASED
     Route: 048
     Dates: start: 20151111
  5. LOMUSTINE. [Suspect]
     Active Substance: LOMUSTINE
     Indication: GLIOBLASTOMA
     Dosage: DATE OF MOST RECENT DOSE ADMINISTERED PRIOR TO THE ONSET OF SAE WAS ON 17/MAR/2015
     Route: 048
     Dates: start: 20140728
  6. LEVETIRACETAM. [Concomitant]
     Active Substance: LEVETIRACETAM
     Indication: SEIZURE
     Route: 048
     Dates: start: 20150803
  7. FUROSEMIDE. [Concomitant]
     Active Substance: FUROSEMIDE
     Indication: OEDEMA PERIPHERAL
     Route: 048
     Dates: start: 20151009, end: 20151113
  8. FUROSEMIDE. [Concomitant]
     Active Substance: FUROSEMIDE
     Indication: ASCITES
     Route: 042
     Dates: start: 20151113

REACTIONS (1)
  - Ascites [Recovered/Resolved]

NARRATIVE: CASE EVENT DATE: 20151113
